FAERS Safety Report 7132324-1 (Version None)
Quarter: 2010Q4

REPORT INFORMATION
  Report Type: 
  Country: None (occurrence: None)
  Receive Date: 20101202
  Receipt Date: 20101123
  Transmission Date: 20110411
  Serious: Yes (Death, Hospitalization)
  Sender: FDA-Public Use
  Company Number: US-BAXTER-2010BH028347

PATIENT
  Sex: Male

DRUGS (2)
  1. DIANEAL [Suspect]
     Indication: PERITONEAL DIALYSIS
     Route: 033
     Dates: end: 20101001
  2. DIANEAL [Suspect]
     Indication: PERITONEAL DIALYSIS
     Route: 033
     Dates: end: 20100101

REACTIONS (5)
  - DIABETIC COMPLICATION [None]
  - GANGRENE [None]
  - POST PROCEDURAL COMPLICATION [None]
  - POST PROCEDURAL INFECTION [None]
  - SEPSIS [None]
